FAERS Safety Report 9628244 (Version 1)
Quarter: 2013Q4

REPORT INFORMATION
  Report Type: Spontaneous
  Country: US (occurrence: US)
  Receive Date: 20131017
  Receipt Date: 20131017
  Transmission Date: 20140711
  Serious: Yes (Hospitalization)
  Sender: FDA-Public Use
  Company Number: US-009507513-1310USA006930

PATIENT
  Age: 78 Year
  Sex: Male

DRUGS (3)
  1. JANUMET XR [Suspect]
     Dosage: STRENGTH 50/1000
     Route: 048
  2. ASPIRIN [Concomitant]
  3. NORVASC [Concomitant]

REACTIONS (1)
  - Hypoglycaemia [Recovered/Resolved]
